FAERS Safety Report 20793456 (Version 1)
Quarter: 2022Q2

REPORT INFORMATION
  Report Type: Spontaneous
  Country: US (occurrence: US)
  Receive Date: 20220506
  Receipt Date: 20220506
  Transmission Date: 20220721
  Serious: Yes (Hospitalization)
  Sender: FDA-Public Use
  Company Number: US-BEH-2022144930

PATIENT
  Age: 12 Year
  Sex: Male

DRUGS (26)
  1. IDELVION [Suspect]
     Active Substance: COAGULATION FACTOR IX RECOMBINANT HUMAN
     Indication: Factor IX deficiency
     Dosage: 282 INTERNATIONAL UNIT, QW
     Route: 042
     Dates: start: 202201
  2. IDELVION [Suspect]
     Active Substance: COAGULATION FACTOR IX RECOMBINANT HUMAN
     Indication: Factor IX deficiency
     Dosage: 282 INTERNATIONAL UNIT, QW
     Route: 042
     Dates: start: 202201
  3. IDELVION [Suspect]
     Active Substance: COAGULATION FACTOR IX RECOMBINANT HUMAN
     Dosage: 2288 INTERNATIONAL UNIT (2059-2517), QW
     Route: 042
     Dates: start: 202201
  4. IDELVION [Suspect]
     Active Substance: COAGULATION FACTOR IX RECOMBINANT HUMAN
     Dosage: 2288 INTERNATIONAL UNIT (2059-2517), QW
     Route: 042
     Dates: start: 202201
  5. IDELVION [Suspect]
     Active Substance: COAGULATION FACTOR IX RECOMBINANT HUMAN
     Dosage: 262 INTERNATIONAL UNIT, PRN
     Route: 042
     Dates: start: 202201
  6. IDELVION [Suspect]
     Active Substance: COAGULATION FACTOR IX RECOMBINANT HUMAN
     Dosage: 262 INTERNATIONAL UNIT, PRN
     Route: 042
     Dates: start: 202201
  7. IDELVION [Suspect]
     Active Substance: COAGULATION FACTOR IX RECOMBINANT HUMAN
     Dosage: 2288 INTERNATIONAL UNIT (2059-2517), PRN
     Route: 042
  8. IDELVION [Suspect]
     Active Substance: COAGULATION FACTOR IX RECOMBINANT HUMAN
     Dosage: 2288 INTERNATIONAL UNIT (2059-2517), PRN
     Route: 042
  9. IDELVION [Suspect]
     Active Substance: COAGULATION FACTOR IX RECOMBINANT HUMAN
     Dosage: 3860 INTERNATIONAL UNIT (3474-4246), PRN
     Route: 042
  10. IDELVION [Suspect]
     Active Substance: COAGULATION FACTOR IX RECOMBINANT HUMAN
     Dosage: 3860 INTERNATIONAL UNIT (3474-4246), PRN
     Route: 042
  11. IDELVION [Suspect]
     Active Substance: COAGULATION FACTOR IX RECOMBINANT HUMAN
     Dosage: 2002 INTERNATIONAL UNIT, QW
     Route: 042
     Dates: start: 202201
  12. IDELVION [Suspect]
     Active Substance: COAGULATION FACTOR IX RECOMBINANT HUMAN
     Dosage: 2002 INTERNATIONAL UNIT, QW
     Route: 042
     Dates: start: 202201
  13. IDELVION [Suspect]
     Active Substance: COAGULATION FACTOR IX RECOMBINANT HUMAN
     Dosage: 282 INTERNATIONAL UNIT, QW
     Route: 042
     Dates: start: 202202
  14. IDELVION [Suspect]
     Active Substance: COAGULATION FACTOR IX RECOMBINANT HUMAN
     Dosage: 282 INTERNATIONAL UNIT, QW
     Route: 042
     Dates: start: 202202
  15. IDELVION [Suspect]
     Active Substance: COAGULATION FACTOR IX RECOMBINANT HUMAN
     Dosage: 3918 INTERNATIONAL UNIT, PRN
     Route: 042
     Dates: start: 202201
  16. IDELVION [Suspect]
     Active Substance: COAGULATION FACTOR IX RECOMBINANT HUMAN
     Dosage: 3918 INTERNATIONAL UNIT, PRN
     Route: 042
     Dates: start: 202201
  17. IDELVION [Suspect]
     Active Substance: COAGULATION FACTOR IX RECOMBINANT HUMAN
     Dosage: 2040 INTERNATIONAL UNIT, PRN
     Route: 042
     Dates: start: 202201
  18. IDELVION [Suspect]
     Active Substance: COAGULATION FACTOR IX RECOMBINANT HUMAN
     Dosage: 2040 INTERNATIONAL UNIT, PRN
     Route: 042
     Dates: start: 202201
  19. IDELVION [Suspect]
     Active Substance: COAGULATION FACTOR IX RECOMBINANT HUMAN
     Dosage: 2040 INTERNATIONAL UNIT, PRN
     Route: 042
     Dates: start: 202202
  20. IDELVION [Suspect]
     Active Substance: COAGULATION FACTOR IX RECOMBINANT HUMAN
     Dosage: 2040 INTERNATIONAL UNIT, PRN
     Route: 042
     Dates: start: 202202
  21. IDELVION [Suspect]
     Active Substance: COAGULATION FACTOR IX RECOMBINANT HUMAN
     Dosage: 1052 INTERNATIONAL UNIT, QW
     Route: 042
     Dates: start: 202201
  22. IDELVION [Suspect]
     Active Substance: COAGULATION FACTOR IX RECOMBINANT HUMAN
     Dosage: 1052 INTERNATIONAL UNIT, QW
     Route: 042
     Dates: start: 202201
  23. IDELVION [Suspect]
     Active Substance: COAGULATION FACTOR IX RECOMBINANT HUMAN
     Dosage: 2002 INTERNATIONAL UNIT, QW
     Route: 042
     Dates: start: 202202
  24. IDELVION [Suspect]
     Active Substance: COAGULATION FACTOR IX RECOMBINANT HUMAN
     Dosage: 2002 INTERNATIONAL UNIT, QW
     Route: 042
     Dates: start: 202202
  25. IDELVION [Suspect]
     Active Substance: COAGULATION FACTOR IX RECOMBINANT HUMAN
     Dosage: 262 INTERNATIONAL UNIT, PRN
     Route: 042
     Dates: start: 202202
  26. IDELVION [Suspect]
     Active Substance: COAGULATION FACTOR IX RECOMBINANT HUMAN
     Dosage: 262 INTERNATIONAL UNIT, PRN
     Route: 042
     Dates: start: 202202

REACTIONS (1)
  - Pharyngeal haemorrhage [Unknown]

NARRATIVE: CASE EVENT DATE: 20220420
